FAERS Safety Report 12706050 (Version 2)
Quarter: 2016Q3

REPORT INFORMATION
  Report Type: Spontaneous
  Country: US (occurrence: US)
  Receive Date: 20160901
  Receipt Date: 20160901
  Transmission Date: 20161109
  Serious: No
  Sender: FDA-Public Use
  Company Number: US-JAZZ-2016-US-007811

PATIENT
  Age: 32 Year
  Sex: Female
  Weight: 82.54 kg

DRUGS (30)
  1. XYREM [Suspect]
     Active Substance: SODIUM OXYBATE
     Indication: CATAPLEXY
     Dosage: DOSE ADJUSTMENTS
     Route: 048
  2. SUMATRIPTAN. [Concomitant]
     Active Substance: SUMATRIPTAN
     Indication: MIGRAINE
  3. HYDROCODONE/ACETAMINOPHEN [Concomitant]
     Active Substance: ACETAMINOPHEN\HYDROCODONE
  4. CEPHALEXIN. [Concomitant]
     Active Substance: CEPHALEXIN
  5. BIOTIN [Concomitant]
     Active Substance: BIOTIN
     Indication: GASTRIC BYPASS
  6. SUMAVEL DOSEPRO [Concomitant]
     Active Substance: SUMATRIPTAN SUCCINATE
  7. ADVIL [Concomitant]
     Active Substance: IBUPROFEN
  8. TRAZODONE [Concomitant]
     Active Substance: TRAZODONE HYDROCHLORIDE
  9. PROZAC [Concomitant]
     Active Substance: FLUOXETINE HYDROCHLORIDE
     Indication: DEPRESSION
  10. FISH OIL OMEGA 3 [Concomitant]
  11. TYLENOL EXTRA STRENGTH [Concomitant]
     Active Substance: ACETAMINOPHEN
  12. FERAHEME [Concomitant]
     Active Substance: FERUMOXYTOL NON-STOICHIOMETRIC MAGNETITE
     Indication: PLATELET COUNT DECREASED
  13. MIDRIN [Concomitant]
     Active Substance: ACETAMINOPHEN\DICHLORALPHENAZONE\ISOMETHEPTENE
     Indication: MIGRAINE
  14. VITAMIN C [Concomitant]
     Active Substance: ASCORBIC ACID
  15. BUTALBITAL AND ACETAMINOPHEN [Concomitant]
     Active Substance: ACETAMINOPHEN\BUTALBITAL
  16. NUVIGIL [Concomitant]
     Active Substance: ARMODAFINIL
  17. PRILOSEC [Concomitant]
     Active Substance: OMEPRAZOLE MAGNESIUM
  18. SUPER B COMPLEX [Concomitant]
     Active Substance: CYANOCOBALAMIN\DEXPANTHENOL\NIACINAMIDE\PYRIDOXINE HYDROCHLORIDE\RIBOFLAVIN 5^-PHOSPHATE SODIUM\THIAMINE HYDROCHLORIDE\VITAMIN B COMPLEX
  19. XYREM [Suspect]
     Active Substance: SODIUM OXYBATE
     Indication: NARCOLEPSY
     Dosage: 2.25 G, BID
     Dates: start: 201311, end: 201311
  20. XYREM [Suspect]
     Active Substance: SODIUM OXYBATE
     Dosage: 4.5 G, BID
     Route: 048
     Dates: start: 201403
  21. ADDERALL [Concomitant]
     Active Substance: AMPHETAMINE ASPARTATE\AMPHETAMINE SULFATE\DEXTROAMPHETAMINE SACCHARATE\DEXTROAMPHETAMINE SULFATE
     Indication: NARCOLEPSY
  22. ALLEGRA ALLERGY [Concomitant]
     Active Substance: FEXOFENADINE HYDROCHLORIDE
  23. PHRENILIN [Concomitant]
     Active Substance: ACETAMINOPHEN\BUTALBITAL
  24. MULTIVITAMINS [Concomitant]
     Active Substance: VITAMINS
     Indication: GASTRIC BYPASS
  25. FERRLECIT [Concomitant]
     Active Substance: SODIUM FERRIC GLUCONATE COMPLEX
  26. ZOFRAN [Concomitant]
     Active Substance: ONDANSETRON HYDROCHLORIDE
  27. LORAZEPAM. [Concomitant]
     Active Substance: LORAZEPAM
  28. MIGRANAL [Concomitant]
     Active Substance: DIHYDROERGOTAMINE MESYLATE
  29. NUVARING [Concomitant]
     Active Substance: ETHINYL ESTRADIOL\ETONOGESTREL
     Indication: CONTRACEPTION
  30. VITAMIN B12 [Concomitant]
     Active Substance: CYANOCOBALAMIN

REACTIONS (3)
  - Nasopharyngitis [Not Recovered/Not Resolved]
  - Eye pain [Unknown]
  - Lacrimation increased [Unknown]

NARRATIVE: CASE EVENT DATE: 201604
